FAERS Safety Report 10203917 (Version 2)
Quarter: 2014Q2

REPORT INFORMATION
  Report Type: Spontaneous
  Country: JP (occurrence: JP)
  Receive Date: 20140529
  Receipt Date: 20140604
  Transmission Date: 20141212
  Serious: Yes (Death, Other)
  Sender: FDA-Public Use
  Company Number: JP-ELI_LILLY_AND_COMPANY-JP201405007111

PATIENT
  Age: 80 Year
  Sex: Female

DRUGS (8)
  1. ZYPREXA [Suspect]
     Indication: SCHIZOPHRENIA
     Dosage: 2.5 MG, BID
     Route: 048
     Dates: start: 20011004, end: 20140512
  2. PZC [Concomitant]
     Indication: SCHIZOPHRENIA
     Dosage: 36 MG, QD
     Route: 048
     Dates: start: 20011004
  3. LEVOTOMIN [Concomitant]
     Indication: SCHIZOPHRENIA
     Dosage: 5 MG, QD
     Route: 048
     Dates: start: 20011004
  4. PYRETHIA [Concomitant]
     Indication: EXTRAPYRAMIDAL DISORDER
     Dosage: 25 MG, QD
     Route: 048
     Dates: start: 20011004
  5. BROTIZOLAM [Concomitant]
     Indication: INSOMNIA
     Dosage: 0.25 MG, QD
     Route: 048
     Dates: start: 20011004
  6. ROHYPNOL [Concomitant]
     Indication: INSOMNIA
     Dosage: 1 MG, QD
     Route: 048
     Dates: start: 20011004
  7. ARTANE [Concomitant]
     Indication: EXTRAPYRAMIDAL DISORDER
     Dosage: 6 MG, QD
     Route: 048
     Dates: start: 20011004
  8. GASMOTIN [Concomitant]
     Indication: GASTROINTESTINAL DISORDER
     Dosage: 15 MG, QD
     Route: 048

REACTIONS (4)
  - Asphyxia [Fatal]
  - Vomiting [Fatal]
  - Diabetes mellitus [Unknown]
  - Pyrexia [Unknown]
